FAERS Safety Report 4775298-0 (Version None)
Quarter: 2005Q3

REPORT INFORMATION
  Report Type: 
  Country: None (occurrence: None)
  Receive Date: 20050920
  Receipt Date: 20050920
  Transmission Date: 20060218
  Serious: Yes (Hospitalization, Other)
  Sender: FDA-Public Use
  Company Number: None

PATIENT
  Sex: Female
  Weight: 83.6 kg

DRUGS (5)
  1. RITUXAN [Suspect]
     Indication: DIFFUSE LARGE B-CELL LYMPHOMA
     Dosage: SEE IMAGE
     Route: 042
     Dates: start: 20050903
  2. CYTOXAN [Suspect]
     Dosage: SEE IMAGE
     Route: 042
     Dates: start: 20050903
  3. DOXIL [Suspect]
     Dosage: SEE IMAGE
     Route: 042
     Dates: start: 20050903, end: 20050903
  4. VINCRISTINE [Suspect]
     Dosage: SEE IMAGE
     Route: 042
     Dates: start: 20050903
  5. PREDNISONE [Suspect]
     Dosage: SEE IMAGE
     Route: 048
     Dates: start: 20050903

REACTIONS (4)
  - ABDOMINAL PAIN [None]
  - CONSTIPATION [None]
  - HEART RATE INCREASED [None]
  - PYREXIA [None]
